FAERS Safety Report 8179290-8 (Version None)
Quarter: 2012Q1

REPORT INFORMATION
  Report Type: 
  Country: None (occurrence: None)
  Receive Date: 20120229
  Receipt Date: 20120229
  Transmission Date: 20120608
  Serious: No
  Sender: FDA-Public Use
  Company Number: None

PATIENT
  Sex: Female
  Weight: 61.2356 kg

DRUGS (2)
  1. VAGIFEM [Suspect]
     Dosage: ONE TABLE TWICE A WEEK
     Dates: start: 20120206
  2. PREMARIN [Suspect]
     Dosage: ONE-HALF ONES
     Dates: start: 20120201

REACTIONS (6)
  - MOOD SWINGS [None]
  - CONFUSIONAL STATE [None]
  - PAIN IN JAW [None]
  - HEADACHE [None]
  - DYSPNOEA [None]
  - HYPERHIDROSIS [None]
